FAERS Safety Report 6932400-X (Version None)
Quarter: 2010Q3

REPORT INFORMATION
  Report Type: 
  Country: None (occurrence: None)
  Receive Date: 20100819
  Receipt Date: 20100810
  Transmission Date: 20110219
  Serious: Yes (Hospitalization)
  Sender: FDA-Public Use
  Company Number: JP-PFIZER INC-2010100562

PATIENT
  Age: 80 Year
  Sex: Male
  Weight: 40.7 kg

DRUGS (3)
  1. DIFLUCAN [Suspect]
     Indication: PROPHYLAXIS
     Dosage: 200 MG, 1X/DAY
     Route: 048
     Dates: start: 20100730, end: 20100810
  2. COTRIM [Suspect]
     Indication: PROPHYLAXIS
     Dosage: UNK
     Route: 048
     Dates: start: 20100730, end: 20100810
  3. LEVOFLOXACIN [Concomitant]
     Indication: PROPHYLAXIS
     Dosage: 250 MG, 2X/WEEK
     Route: 048
     Dates: start: 20100730

REACTIONS (1)
  - TACHYPNOEA [None]
